FAERS Safety Report 13730516 (Version 2)
Quarter: 2017Q3

REPORT INFORMATION
  Report Type: Report from Study
  Country: IT (occurrence: IT)
  Receive Date: 20170707
  Receipt Date: 20170720
  Transmission Date: 20171127
  Serious: Yes (Death, Other)
  Sender: FDA-Public Use
  Company Number: IT-TEVA-783651ROM

PATIENT
  Age: 83 Year
  Sex: Male

DRUGS (1)
  1. ALLOPURINOL. [Suspect]
     Active Substance: ALLOPURINOL
     Route: 065

REACTIONS (2)
  - Stevens-Johnson syndrome [Fatal]
  - Acute kidney injury [Fatal]
